FAERS Safety Report 9994596 (Version 2)
Quarter: 2014Q1

REPORT INFORMATION
  Report Type: Spontaneous
  Country: US (occurrence: US)
  Receive Date: 20140311
  Receipt Date: 20140311
  Transmission Date: 20141002
  Serious: Yes (Other)
  Sender: FDA-Public Use
  Company Number: US-BRISTOL-MYERS SQUIBB COMPANY-20165783

PATIENT
  Age: 71 Year
  Sex: Female

DRUGS (2)
  1. SPRYCEL (CML) TABS 100 MG [Suspect]
     Indication: CHRONIC MYELOID LEUKAEMIA
     Route: 048
     Dates: start: 200911
  2. NEURONTIN [Suspect]
     Dosage: RED TO 300MG/D

REACTIONS (2)
  - Dementia [Unknown]
  - Fall [Unknown]
